FAERS Safety Report 9375842 (Version 2)
Quarter: 2013Q3

REPORT INFORMATION
  Report Type: Report from Study
  Country: US (occurrence: US)
  Receive Date: 20130628
  Receipt Date: 20130808
  Transmission Date: 20140515
  Serious: Yes (Hospitalization, Other)
  Sender: FDA-Public Use
  Company Number: US-ABBOTT-13P-163-1108832-00

PATIENT
  Age: 65 Year
  Sex: Female

DRUGS (13)
  1. HUMIRA [Suspect]
     Indication: PSORIATIC ARTHROPATHY
     Dates: start: 201108, end: 20120415
  2. CRESTOR [Concomitant]
     Indication: BLOOD CHOLESTEROL INCREASED
     Dosage: 20 MG DAILY
  3. DIOVAN [Concomitant]
     Indication: HYPERTENSION
     Dosage: 320 MG DAILY
  4. ACIPHEX [Concomitant]
     Indication: GASTROOESOPHAGEAL REFLUX DISEASE
     Dosage: 20 MG DAILY
  5. SINGULAIR [Concomitant]
     Indication: HYPERSENSITIVITY
     Dosage: 10 MG DAILY
  6. SINGULAIR [Concomitant]
     Indication: ASTHMA
  7. RECLAST [Concomitant]
     Indication: OSTEOPENIA
     Route: 042
  8. XOPENEX [Concomitant]
     Indication: ASTHMA
     Dosage: NEBULIZER
  9. ADVAIR [Concomitant]
     Indication: ASTHMA
     Dosage: 550 MG 1 PUFF
  10. VITAMIN D [Concomitant]
     Indication: PRODUCT USED FOR UNKNOWN INDICATION
  11. CALTRATE [Concomitant]
     Indication: PRODUCT USED FOR UNKNOWN INDICATION
  12. LEFLUNOMIDE [Concomitant]
     Indication: GAIT DISTURBANCE
     Dosage: 10 MG TWO TABS DAILY
     Dates: start: 201208
  13. LEFLUNOMIDE [Concomitant]
     Indication: PSORIATIC ARTHROPATHY

REACTIONS (10)
  - Dysarthria [Unknown]
  - Blood pressure fluctuation [Recovered/Resolved]
  - Coronary artery stenosis [Unknown]
  - Hypertension [Recovered/Resolved]
  - Chest pain [Unknown]
  - Localised infection [Recovered/Resolved]
  - Wound [Unknown]
  - Gait disturbance [Unknown]
  - Psoriatic arthropathy [Unknown]
  - Eczema [Unknown]
